FAERS Safety Report 8566390-3 (Version None)
Quarter: 2012Q3

REPORT INFORMATION
  Report Type: 
  Country: None (occurrence: None)
  Receive Date: 20120803
  Receipt Date: 20111026
  Transmission Date: 20120928
  Serious: No
  Sender: FDA-Public Use
  Company Number: US-ABBOTT-11P-163-0869318-00

PATIENT
  Sex: Female
  Weight: 54.026 kg

DRUGS (2)
  1. CLONAZEPAM [Concomitant]
     Indication: SLEEP DISORDER
  2. NIASPAN [Suspect]
     Indication: BLOOD CHOLESTEROL INCREASED
     Dates: start: 19980101

REACTIONS (2)
  - BLOOD CREATININE ABNORMAL [None]
  - GLOMERULAR FILTRATION RATE ABNORMAL [None]
